FAERS Safety Report 21771944 (Version 2)
Quarter: 2023Q1

REPORT INFORMATION
  Report Type: Spontaneous
  Country: PL (occurrence: PL)
  Receive Date: 20221223
  Receipt Date: 20230126
  Transmission Date: 20230417
  Serious: Yes (Other)
  Sender: FDA-Public Use
  Company Number: PL-002147023-NVSC2022PL293205

PATIENT
  Age: 46 Year
  Sex: Female

DRUGS (1)
  1. NEVANAC [Suspect]
     Active Substance: NEPAFENAC
     Indication: Central serous chorioretinopathy
     Dosage: UNK
     Route: 065

REACTIONS (2)
  - Subretinal fluid [Unknown]
  - Product availability issue [Unknown]
